FAERS Safety Report 6823943-8 (Version None)
Quarter: 2010Q3

REPORT INFORMATION
  Report Type: 
  Country: None (occurrence: None)
  Receive Date: 20100708
  Receipt Date: 20060920
  Transmission Date: 20110219
  Serious: No
  Sender: FDA-Public Use
  Company Number: US-PFIZER INC-2006114587

PATIENT
  Sex: Female
  Weight: 72.57 kg

DRUGS (4)
  1. VARENICLINE [Suspect]
     Indication: EX-TOBACCO USER
     Dates: start: 20060901
  2. ZOCOR [Concomitant]
  3. LEVOTHROID [Concomitant]
  4. EFFEXOR XR [Concomitant]

REACTIONS (1)
  - INTENTIONAL DRUG MISUSE [None]
